FAERS Safety Report 21288897 (Version 1)
Quarter: 2022Q3

REPORT INFORMATION
  Report Type: Spontaneous
  Country: US (occurrence: US)
  Receive Date: 20220902
  Receipt Date: 20220902
  Transmission Date: 20221027
  Serious: No
  Sender: FDA-Public Use
  Company Number: US-ABBVIE-22K-163-4392820-00

PATIENT
  Age: 62 Year
  Sex: Male

DRUGS (4)
  1. LUPRON [Suspect]
     Active Substance: LEUPROLIDE ACETATE
     Indication: Prostate cancer
     Route: 030
     Dates: start: 20220408
  2. LOSARTAN POTASSIUM [Concomitant]
     Active Substance: LOSARTAN POTASSIUM
     Indication: Product used for unknown indication
  3. TADALAFIL [Concomitant]
     Active Substance: TADALAFIL
     Indication: Product used for unknown indication
  4. COVID-19 VACCINE NOS [Concomitant]
     Active Substance: COVID-19 VACCINE NOS
     Indication: COVID-19 immunisation
     Route: 030

REACTIONS (1)
  - Muscular weakness [Not Recovered/Not Resolved]

NARRATIVE: CASE EVENT DATE: 20220415
